FAERS Safety Report 8852817 (Version 3)
Quarter: 2013Q1

REPORT INFORMATION
  Report Type: Spontaneous
  Country: JP (occurrence: JP)
  Receive Date: 20121022
  Receipt Date: 20130124
  Transmission Date: 20140127
  Serious: Yes (Hospitalization, Other)
  Sender: FDA-Public Use
  Company Number: PHHY2012JP093965

PATIENT
  Age: 52 Year
  Sex: Male

DRUGS (3)
  1. DICLOFENAC [Suspect]
     Indication: RHEUMATOID ARTHRITIS
     Dosage: 75 MG, DAILY
     Route: 048
     Dates: start: 1977, end: 2000
  2. DICLOFENAC [Suspect]
     Dosage: 100 UNK, DAILY
     Route: 048
     Dates: start: 2000, end: 201107
  3. FAMOTIDINE [Concomitant]
     Indication: RHEUMATOID ARTHRITIS
     Route: 048

REACTIONS (8)
  - Gastric ulcer [Recovering/Resolving]
  - Abdominal pain upper [Recovered/Resolved]
  - Melaena [Recovered/Resolved]
  - Duodenal stenosis [Unknown]
  - Pyloric stenosis [Recovered/Resolved]
  - Diverticulum [Recovered/Resolved]
  - Scar [Recovered/Resolved]
  - Impaired healing [Recovered/Resolved]
